FAERS Safety Report 13869999 (Version 2)
Quarter: 2017Q3

REPORT INFORMATION
  Report Type: Spontaneous
  Country: GT (occurrence: GT)
  Receive Date: 20170815
  Receipt Date: 20170816
  Transmission Date: 20171127
  Serious: Yes (Hospitalization, Other)
  Sender: FDA-Public Use
  Company Number: GT-ABBVIE-17P-069-2068776-00

PATIENT
  Age: 38 Year
  Sex: Male

DRUGS (6)
  1. PARICALCITOL. [Suspect]
     Active Substance: PARICALCITOL
     Indication: HYPERPARATHYROIDISM SECONDARY
     Route: 042
     Dates: start: 2013
  2. ERYTHROPOIETIN [Concomitant]
     Active Substance: ERYTHROPOIETIN
     Indication: PRODUCT USED FOR UNKNOWN INDICATION
  3. AMIKACIN [Concomitant]
     Active Substance: AMIKACIN
     Indication: ABSCESS
     Dates: start: 20170731
  4. PLENDIL [Concomitant]
     Active Substance: FELODIPINE
     Indication: PRODUCT USED FOR UNKNOWN INDICATION
  5. CARVEDILOL. [Concomitant]
     Active Substance: CARVEDILOL
     Indication: PRODUCT USED FOR UNKNOWN INDICATION
     Dosage: AS REQUIRED UP TO 2 TABS Q 12 H WHEN PULSE 108 BEATS/MIN
  6. VALSARTAN. [Concomitant]
     Active Substance: VALSARTAN
     Indication: PRODUCT USED FOR UNKNOWN INDICATION

REACTIONS (9)
  - Postoperative abscess [Recovering/Resolving]
  - Renal tubular necrosis [Recovering/Resolving]
  - Pneumonia [Recovering/Resolving]
  - Pneumothorax [Recovering/Resolving]
  - Dyspnoea [Recovering/Resolving]
  - Anaemia [Recovering/Resolving]
  - Pneumonia [Recovering/Resolving]
  - Kidney transplant rejection [Recovering/Resolving]
  - Aphasia [Recovering/Resolving]

NARRATIVE: CASE EVENT DATE: 201701
